FAERS Safety Report 11922154 (Version 1)
Quarter: 2016Q1

REPORT INFORMATION
  Report Type: Spontaneous
  Country: US (occurrence: US)
  Receive Date: 20160115
  Receipt Date: 20160115
  Transmission Date: 20160526
  Serious: Yes (Death)
  Sender: FDA-Public Use
  Company Number: PHEH2016US001210

PATIENT
  Sex: Female

DRUGS (1)
  1. TEGRETOL [Suspect]
     Active Substance: CARBAMAZEPINE
     Indication: PRODUCT USED FOR UNKNOWN INDICATION
     Dosage: STARTED AT THE AGE OF 12 TO THE AGE 49 (37 YEARS ON TEGRETOL)
     Route: 065

REACTIONS (4)
  - Cholangiocarcinoma [Fatal]
  - Metastases to bone [Fatal]
  - Pain [Unknown]
  - General physical health deterioration [Unknown]
